FAERS Safety Report 6035869-0 (Version None)
Quarter: 2009Q1

REPORT INFORMATION
  Report Type: 
  Country: None (occurrence: None)
  Receive Date: 20090113
  Receipt Date: 20090105
  Transmission Date: 20090719
  Serious: Yes (Death, Hospitalization)
  Sender: FDA-Public Use
  Company Number: US-BRISTOL-MYERS SQUIBB COMPANY-14466601

PATIENT
  Age: 87 Year
  Sex: Male

DRUGS (2)
  1. CETUXIMAB [Suspect]
     Indication: PROSTATE CANCER METASTATIC
     Dosage: INITIAL DOSE: 02-DEC-2008: 106.2857MG (CHIMERIC ANTI-EGFR MAB) DURATION 28 DAYS
     Route: 042
     Dates: start: 20081202, end: 20081230
  2. NOVANTRONE [Suspect]
     Indication: PROSTATE CANCER METASTATIC
     Route: 042

REACTIONS (3)
  - MULTI-ORGAN FAILURE [None]
  - NEUTROPENIA [None]
  - PNEUMONIA [None]
